FAERS Safety Report 4539999-1 (Version None)
Quarter: 2004Q4

REPORT INFORMATION
  Report Type: 
  Country: None (occurrence: None)
  Receive Date: 20041228
  Receipt Date: 20041221
  Transmission Date: 20050328
  Serious: Yes (Other)
  Sender: FDA-Public Use
  Company Number: 04-12-1789

PATIENT

DRUGS (2)
  1. PROBENECID W/COLCHICINE - IPI [Suspect]
     Indication: GOUT
  2. FLUINDIONE ORALS [Suspect]
     Indication: ANTICOAGULANT THERAPY

REACTIONS (2)
  - HAEMORRHOIDAL HAEMORRHAGE [None]
  - INTERNATIONAL NORMALISED RATIO INCREASED [None]
